FAERS Safety Report 10790438 (Version 1)
Quarter: 2015Q1

REPORT INFORMATION
  Report Type: Spontaneous
  Country: JP (occurrence: JP)
  Receive Date: 20150212
  Receipt Date: 20150212
  Transmission Date: 20150721
  Serious: Yes (Hospitalization)
  Sender: FDA-Public Use
  Company Number: JP-009507513-1502JPN003472

PATIENT
  Age: 67 Year
  Sex: Female

DRUGS (11)
  1. DIOVAN [Concomitant]
     Active Substance: VALSARTAN
     Dosage: DAILY DOSE UNKNOWN
     Route: 048
  2. SUNRYTHM [Concomitant]
     Active Substance: PILSICAINIDE HYDROCHLORIDE
     Dosage: DAILY DOSE UNKNOWN
     Route: 065
  3. URSO [Concomitant]
     Active Substance: URSODIOL
     Dosage: DAILY DOSE UNKNOWN
     Route: 048
  4. PEGASYS [Suspect]
     Active Substance: PEGINTERFERON ALFA-2A
  5. GASMOTIN [Concomitant]
     Active Substance: MOSAPRIDE CITRATE
     Dosage: DAILY DOSE UNKNOWN
     Route: 048
  6. FERON [Suspect]
     Active Substance: INTERFERON BETA
     Indication: CHRONIC HEPATITIS C
     Dosage: 3 THOUSAND-MILLION UNIT, QD
     Route: 051
     Dates: start: 20100127, end: 20100727
  7. LOCHOL (FLUVASTATIN SODIUM) [Concomitant]
     Active Substance: FLUVASTATIN SODIUM
     Dosage: DAILY DOSE UNKNOWN
     Route: 048
  8. REBETOL [Suspect]
     Active Substance: RIBAVIRIN
     Indication: CHRONIC HEPATITIS C
     Dosage: DAILY DOSE UNKNOWN
     Route: 048
  9. ADALAT CC [Concomitant]
     Active Substance: NIFEDIPINE
     Dosage: DAILY DOSE UNKNOWN
     Route: 048
  10. MYSLEE [Concomitant]
     Active Substance: ZOLPIDEM TARTRATE
     Dosage: DAILY DOSE UNKNOWN
     Dates: end: 20100806
  11. FERON [Suspect]
     Active Substance: INTERFERON BETA
     Dosage: 6 THOUSAND-MILLION UNIT, QD
     Route: 051
     Dates: start: 20100728, end: 20100806

REACTIONS (3)
  - Paranoia [Recovered/Resolved]
  - Claustrophobia [Unknown]
  - Insomnia [Unknown]

NARRATIVE: CASE EVENT DATE: 20100728
